FAERS Safety Report 11846708 (Version 1)
Quarter: 2015Q4

REPORT INFORMATION
  Report Type: Spontaneous
  Country: US (occurrence: US)
  Receive Date: 20151217
  Receipt Date: 20151217
  Transmission Date: 20160305
  Serious: No
  Sender: FDA-Public Use
  Company Number: US-ROCHE-1524376

PATIENT
  Age: 38 Year
  Sex: Female

DRUGS (3)
  1. TAMIFLU [Suspect]
     Active Substance: OSELTAMIVIR PHOSPHATE
     Indication: INFLUENZA
     Dosage: TOOK ONE DOSE
     Route: 065
     Dates: start: 20150120, end: 20150120
  2. ALBUTEROL. [Concomitant]
     Active Substance: ALBUTEROL
     Dosage: TOOK IN THE MORNING
     Route: 065
  3. AZITHROMYCIN [Concomitant]
     Active Substance: AZITHROMYCIN ANHYDROUS
     Indication: BRONCHITIS
     Dosage: TOOK IN THE MORNING
     Route: 065

REACTIONS (5)
  - Vomiting [Unknown]
  - Rash [Unknown]
  - Burning sensation [Unknown]
  - Diarrhoea [Unknown]
  - Headache [Unknown]

NARRATIVE: CASE EVENT DATE: 20150120
